FAERS Safety Report 14733965 (Version 1)
Quarter: 2018Q2

REPORT INFORMATION
  Report Type: Spontaneous
  Country: JP (occurrence: JP)
  Receive Date: 20180409
  Receipt Date: 20180409
  Transmission Date: 20180711
  Serious: Yes (Death)
  Sender: FDA-Public Use
  Company Number: JP-ROCHE-2031859

PATIENT
  Age: 69 Year
  Sex: Male

DRUGS (1)
  1. ALECENSA [Suspect]
     Active Substance: ALECTINIB HYDROCHLORIDE
     Indication: NON-SMALL CELL LUNG CANCER
     Route: 048
     Dates: start: 20171107, end: 20171128

REACTIONS (5)
  - Nausea [Unknown]
  - Non-small cell lung cancer [Fatal]
  - Pleural effusion [Unknown]
  - Asthenia [Unknown]
  - Protein total decreased [Unknown]

NARRATIVE: CASE EVENT DATE: 20171128
